FAERS Safety Report 21361508 (Version 1)
Quarter: 2022Q3

REPORT INFORMATION
  Report Type: Report from Study
  Country: US (occurrence: US)
  Receive Date: 20220921
  Receipt Date: 20220921
  Transmission Date: 20221027
  Serious: Yes (Hospitalization)
  Sender: FDA-Public Use
  Company Number: US-GILEAD-2022-0598130

PATIENT
  Age: 38 Year
  Sex: Female

DRUGS (22)
  1. AZTREONAM LYSINE [Suspect]
     Active Substance: AZTREONAM LYSINE
     Indication: Cystic fibrosis
     Dosage: 75 MG, TID, FOR 28 DAYS, USE EVERY OTHER MONTH
     Route: 055
     Dates: start: 20210421
  2. AMLODIPINE [Concomitant]
     Active Substance: AMLODIPINE BESYLATE
  3. AZATHIOPRINE [Concomitant]
     Active Substance: AZATHIOPRINE
  4. AZELASTINE [Concomitant]
     Active Substance: AZELASTINE
  5. AZITHROMYCIN [Concomitant]
     Active Substance: AZITHROMYCIN
  6. BASAGLAR [Concomitant]
     Active Substance: INSULIN GLARGINE
  7. BUPROPION [Concomitant]
     Active Substance: BUPROPION
  8. BUTALBITAL, ACETAMINOPHEN, AND CAFFEINE [Concomitant]
     Active Substance: ACETAMINOPHEN\BUTALBITAL\CAFFEINE
  9. CETIRIZINE [Concomitant]
     Active Substance: CETIRIZINE HYDROCHLORIDE
  10. CREON [Concomitant]
     Active Substance: PANCRELIPASE AMYLASE\PANCRELIPASE LIPASE\PANCRELIPASE PROTEASE
  11. ELIQUIS [Concomitant]
     Active Substance: APIXABAN
  12. ENVARSUS XR [Concomitant]
     Active Substance: TACROLIMUS
  13. FAMOTIDINE [Concomitant]
     Active Substance: FAMOTIDINE
  14. MODAFINIL [Concomitant]
     Active Substance: MODAFINIL
  15. NOVOLOG [Concomitant]
     Active Substance: INSULIN ASPART
  16. ONDANSETRON [Concomitant]
     Active Substance: ONDANSETRON
  17. PREDNISONE [Concomitant]
     Active Substance: PREDNISONE
  18. PROPRANOLOL [Concomitant]
     Active Substance: PROPRANOLOL HYDROCHLORIDE
  19. TRAZODONE [Concomitant]
     Active Substance: TRAZODONE HYDROCHLORIDE
  20. URSODIOL [Concomitant]
     Active Substance: URSODIOL
  21. VILAZODONE [Concomitant]
     Active Substance: VILAZODONE
  22. VITAMIN D3 [Concomitant]
     Active Substance: CHOLECALCIFEROL

REACTIONS (3)
  - Migraine [Unknown]
  - Dehydration [Unknown]
  - Cough [Unknown]
